FAERS Safety Report 25106412 (Version 1)
Quarter: 2025Q1

REPORT INFORMATION
  Report Type: Spontaneous
  Country: US (occurrence: None)
  Receive Date: 20250320
  Receipt Date: 20250320
  Transmission Date: 20250408
  Serious: Yes (Hospitalization)
  Sender: FDA-CTU
  Company Number: None

PATIENT
  Age: 73 Year
  Sex: Male

DRUGS (1)
  1. RIVAROXABAN [Suspect]
     Active Substance: RIVAROXABAN
     Indication: Deep vein thrombosis

REACTIONS (5)
  - Haemorrhage [None]
  - Haematochezia [None]
  - Abdominal hernia [None]
  - Gastrointestinal haemorrhage [None]
  - Deep vein thrombosis [None]

NARRATIVE: CASE EVENT DATE: 20241206
